FAERS Safety Report 16906997 (Version 1)
Quarter: 2019Q4

REPORT INFORMATION
  Report Type: Report from Study
  Country: US (occurrence: US)
  Receive Date: 20191011
  Receipt Date: 20191011
  Transmission Date: 20200122
  Serious: Yes (Other)
  Sender: FDA-Public Use
  Company Number: US-ROCHE-2427520

PATIENT
  Sex: Male
  Weight: 111.46 kg

DRUGS (2)
  1. OCREVUS [Suspect]
     Active Substance: OCRELIZUMAB
     Route: 065
     Dates: start: 2017
  2. OCREVUS [Suspect]
     Active Substance: OCRELIZUMAB
     Indication: PRIMARY PROGRESSIVE MULTIPLE SCLEROSIS
     Dosage: ONGOING:NO
     Route: 065
     Dates: start: 201603

REACTIONS (22)
  - Bladder cancer [Unknown]
  - Syncope [Unknown]
  - Pain [Unknown]
  - Malaise [Unknown]
  - Fall [Unknown]
  - Abdominal pain [Unknown]
  - Dysuria [Unknown]
  - Arthralgia [Unknown]
  - Gait disturbance [Unknown]
  - Joint swelling [Unknown]
  - Insomnia [Unknown]
  - Myalgia [Unknown]
  - Snoring [Unknown]
  - Depression [Unknown]
  - Dyspnoea [Unknown]
  - Peripheral swelling [Unknown]
  - Restless legs syndrome [Unknown]
  - Dysphonia [Unknown]
  - Hyperhidrosis [Unknown]
  - Tinnitus [Unknown]
  - Lethargy [Unknown]
  - Nasal congestion [Unknown]
